FAERS Safety Report 11458820 (Version 1)
Quarter: 2015Q3

REPORT INFORMATION
  Report Type: Spontaneous
  Country: US (occurrence: None)
  Receive Date: 20150903
  Receipt Date: 20150903
  Transmission Date: 20151125
  Serious: Yes (Hospitalization)
  Sender: FDA-Public Use
  Company Number: None

PATIENT
  Age: 74 Year
  Sex: Male
  Weight: 83.9 kg

DRUGS (6)
  1. NS [Concomitant]
     Active Substance: SODIUM CHLORIDE
  2. ONDANSETRON [Concomitant]
     Active Substance: ONDANSETRON
  3. ALTEPLASE [Suspect]
     Active Substance: ALTEPLASE
     Indication: ISCHAEMIC STROKE
  4. IOHESOL [Concomitant]
  5. LABETELOL [Concomitant]
  6. NICARDIPINE [Concomitant]
     Active Substance: NICARDIPINE

REACTIONS (6)
  - Dizziness [None]
  - VIIth nerve paralysis [None]
  - Dysarthria [None]
  - Ataxia [None]
  - Nystagmus [None]
  - Seizure like phenomena [None]

NARRATIVE: CASE EVENT DATE: 20150902
